FAERS Safety Report 11475761 (Version 2)
Quarter: 2015Q3

REPORT INFORMATION
  Report Type: Report from Study
  Country: US (occurrence: US)
  Receive Date: 20150909
  Receipt Date: 20150919
  Transmission Date: 20151125
  Serious: Yes (Death, Hospitalization)
  Sender: FDA-Public Use
  Company Number: US-AUROBINDO-AUR-APL-2015-07883

PATIENT
  Age: 59 Year
  Sex: Female

DRUGS (1)
  1. OXYCODONE [Suspect]
     Active Substance: OXYCODONE
     Indication: PRODUCT USED FOR UNKNOWN INDICATION
     Route: 065

REACTIONS (12)
  - Abnormal behaviour [Unknown]
  - Leukoencephalopathy [Unknown]
  - Parkinsonism [Unknown]
  - Respiratory failure [Unknown]
  - Mania [Unknown]
  - Muscle rigidity [Unknown]
  - Condition aggravated [Unknown]
  - Overdose [Unknown]
  - Death [Fatal]
  - Hypoxia [Unknown]
  - Unresponsive to stimuli [Unknown]
  - Catatonia [Unknown]
